FAERS Safety Report 5904673-3 (Version None)
Quarter: 2008Q4

REPORT INFORMATION
  Report Type: 
  Country: None (occurrence: None)
  Receive Date: 20081001
  Receipt Date: 20080919
  Transmission Date: 20090506
  Serious: Yes (Other)
  Sender: FDA-Public Use
  Company Number: JP-JNJFOC-20080906125

PATIENT
  Age: 65 Year
  Sex: Male

DRUGS (5)
  1. DUROTEP [Suspect]
     Indication: DRUG USE FOR UNKNOWN INDICATION
     Route: 062
  2. ROPION [Concomitant]
     Route: 042
  3. BETAMETHASONE [Concomitant]
     Route: 042
  4. DEPAS [Concomitant]
     Route: 048
  5. TRYPTANOL [Concomitant]
     Route: 065

REACTIONS (1)
  - DELIRIUM [None]
